FAERS Safety Report 7980645-2 (Version None)
Quarter: 2011Q4

REPORT INFORMATION
  Report Type: 
  Country: None (occurrence: None)
  Receive Date: 20111214
  Receipt Date: 20111208
  Transmission Date: 20120403
  Serious: Yes (Hospitalization, Other)
  Sender: FDA-Public Use
  Company Number: US-ABBOTT-11P-163-0862670-00

PATIENT
  Age: 24 Year
  Sex: Female

DRUGS (9)
  1. MULTI-VITAMIN [Concomitant]
     Indication: PRODUCT USED FOR UNKNOWN INDICATION
  2. VITAMIN B COMPLEX WITH VITAMIN C [Concomitant]
     Indication: VITAMIN SUPPLEMENTATION
  3. HUMIRA [Suspect]
     Route: 058
  4. ZOLOFT [Concomitant]
     Indication: NERVOUSNESS
  5. HUMIRA [Suspect]
     Indication: CROHN'S DISEASE
     Route: 058
     Dates: start: 20110902, end: 20110902
  6. PREDNISONE TAB [Concomitant]
     Indication: PRODUCT USED FOR UNKNOWN INDICATION
  7. HUMIRA [Suspect]
     Route: 058
     Dates: start: 20110916, end: 20110916
  8. PROTONIX [Concomitant]
     Indication: PRODUCT USED FOR UNKNOWN INDICATION
  9. VITAMIN D [Concomitant]
     Indication: VITAMIN SUPPLEMENTATION

REACTIONS (7)
  - SINUS CONGESTION [None]
  - ABDOMINAL PAIN [None]
  - FLUID RETENTION [None]
  - INJECTION SITE HAEMATOMA [None]
  - INFECTION [None]
  - DRUG INEFFECTIVE [None]
  - HAEMORRHAGE [None]
